FAERS Safety Report 14997560 (Version 2)
Quarter: 2018Q2

REPORT INFORMATION
  Report Type: Spontaneous
  Country: US (occurrence: US)
  Receive Date: 20180611
  Receipt Date: 20180615
  Transmission Date: 20180711
  Serious: No
  Sender: FDA-Public Use
  Company Number: US-VIFOR (INTERNATIONAL) INC.-VIT-2018-05409

PATIENT
  Age: 86 Year
  Sex: Female

DRUGS (15)
  1. FLUTICASONE PROPIONATE. [Concomitant]
     Active Substance: FLUTICASONE PROPIONATE
  2. SIMVASTATIN. [Concomitant]
     Active Substance: SIMVASTATIN
  3. FERROUS SULFATE. [Concomitant]
     Active Substance: FERROUS SULFATE
  4. VALSARTAN. [Concomitant]
     Active Substance: VALSARTAN
  5. ELIQUIS [Concomitant]
     Active Substance: APIXABAN
  6. LANTUS [Concomitant]
     Active Substance: INSULIN GLARGINE
  7. ERGOCALCIFEROL~~ASCORBIC ACID~~TOCOPHEROL~~FOLIC ACID~~RETINOL~~VITAMIN B NOS [Concomitant]
  8. FISH OIL [Concomitant]
     Active Substance: FISH OIL
  9. ATENOLOL. [Concomitant]
     Active Substance: ATENOLOL
  10. HYDROCHLOROTHIAZIDE. [Concomitant]
     Active Substance: HYDROCHLOROTHIAZIDE
  11. VELTASSA [Suspect]
     Active Substance: PATIROMER
     Indication: HYPERKALAEMIA
     Route: 048
     Dates: start: 20180511
  12. AMLODIPINE BESILATE [Concomitant]
     Active Substance: AMLODIPINE BESYLATE
  13. GLIMEPIRIDE. [Concomitant]
     Active Substance: GLIMEPIRIDE
  14. LEVOTHYROXINE SODIUM. [Concomitant]
     Active Substance: LEVOTHYROXINE SODIUM
  15. MELATONIN [Concomitant]
     Active Substance: MELATONIN

REACTIONS (1)
  - Alopecia [Unknown]

NARRATIVE: CASE EVENT DATE: 20180519
